FAERS Safety Report 7586519-3 (Version None)
Quarter: 2011Q3

REPORT INFORMATION
  Report Type: 
  Country: None (occurrence: None)
  Receive Date: 20110701
  Receipt Date: 20110621
  Transmission Date: 20111222
  Serious: Yes (Hospitalization)
  Sender: FDA-Public Use
  Company Number: RO-ROCHE-785067

PATIENT
  Sex: Female
  Weight: 74.5 kg

DRUGS (6)
  1. TRASTUZUMAB [Suspect]
     Dosage: LOADING DOSE
     Route: 042
     Dates: start: 20100921
  2. TRASTUZUMAB [Suspect]
     Dosage: RESTARTED
     Route: 042
     Dates: start: 20110517
  3. TRASTUZUMAB [Suspect]
     Dosage: MAINTENANCE DOSE, TOTAL DOSE: 450 MG, FORM: VIALS, LAST DOSE PRIOR TO SAE: 19 APR 2011, DRUG HELD.
     Route: 042
     Dates: start: 20101012
  4. PRESTARIUM [Concomitant]
     Dates: start: 20100920
  5. AMLOHEXAL [Concomitant]
     Dates: start: 20100920
  6. PHYSIOTENS [Concomitant]
     Dates: start: 20100920

REACTIONS (1)
  - ANGINA PECTORIS [None]
